FAERS Safety Report 6684337-1 (Version None)
Quarter: 2010Q2

REPORT INFORMATION
  Report Type: 
  Country: None (occurrence: None)
  Receive Date: 20100416
  Receipt Date: 20100407
  Transmission Date: 20101027
  Serious: Yes (Hospitalization)
  Sender: FDA-Public Use
  Company Number: PHHY2010CA21758

PATIENT
  Sex: Male

DRUGS (12)
  1. ALISKIREN ALI+ [Suspect]
     Indication: HYPERTENSION
     Dosage: 150 MG, DAILY
     Route: 048
     Dates: start: 20091004, end: 20091227
  2. LIPITOR [Concomitant]
  3. ADALAT CC [Concomitant]
     Dosage: 1 DF, PER DAY
  4. ACETAMINOPHEN [Concomitant]
     Dosage: 2 TABLETS EVERY 4-6 HOURS, PRN
  5. PANTOPRAZOLE [Concomitant]
     Dosage: 1 DF, PER DAY 30 MINUTES BEFORE BREAKFAST
  6. METOPROLOL TARTRATE [Concomitant]
     Dosage: 1 DF, PER DAY MORNING
  7. MICARDIS [Concomitant]
     Dosage: 1 DF, PER DAY
  8. METFORMIN HCL [Concomitant]
     Dosage: 2 DF, PER DAY
  9. ACTOS [Concomitant]
     Dosage: 30 MG, PER DAY
  10. ASAPHEN [Concomitant]
     Dosage: 80 MG, UNK
  11. AMARYL [Concomitant]
     Dosage: 2 MG, PER DAY
  12. ASCENSIA CONTOUR BANDELETTE [Concomitant]

REACTIONS (2)
  - ANGINA UNSTABLE [None]
  - CHEST DISCOMFORT [None]
